FAERS Safety Report 5599863-6 (Version None)
Quarter: 2008Q1

REPORT INFORMATION
  Report Type: 
  Country: None (occurrence: None)
  Receive Date: 20080123
  Receipt Date: 20080111
  Transmission Date: 20080703
  Serious: Yes (Other)
  Sender: FDA-Public Use
  Company Number: TR-WYE-H02100408

PATIENT
  Sex: Female
  Weight: 72 kg

DRUGS (1)
  1. EFFEXOR [Suspect]
     Indication: MAJOR DEPRESSION
     Route: 048
     Dates: start: 20070115, end: 20071009

REACTIONS (1)
  - PARAPSORIASIS [None]
